FAERS Safety Report 8835604 (Version 1)
Quarter: 2012Q4

REPORT INFORMATION
  Report Type: 
  Country: US (occurrence: US)
  Receive Date: 20121011
  Receipt Date: 20121011
  Transmission Date: 20130627
  Serious: Yes (Other)
  Sender: FDA-Public Use
  Company Number: US-BAYER-2012-104397

PATIENT
  Sex: Female

DRUGS (1)
  1. MIRENA [Suspect]
     Dosage: 20 mcg/24hr, CONT
     Dates: start: 201010, end: 201011

REACTIONS (6)
  - Abortion spontaneous [None]
  - Abortion early [None]
  - Discomfort [None]
  - Pregnancy [None]
  - Hormone level abnormal [Not Recovered/Not Resolved]
  - Menstruation delayed [None]
